FAERS Safety Report 8783921 (Version 1)
Quarter: 2012Q4

REPORT INFORMATION
  Report Type: 
  Country: US (occurrence: None)
  Receive Date: 20120906
  Receipt Date: 20120906
  Transmission Date: 20130627
  Serious: Yes (Hospitalization)
  Sender: FDA-Public Use
  Company Number: None

PATIENT
  Age: 75 Year
  Sex: Male
  Weight: 104.33 kg

DRUGS (40)
  1. IMIQUIMOD [Suspect]
     Indication: ACTINIC KERATOSIS
     Route: 061
     Dates: start: 20120611, end: 20120723
  2. LOSARTAN [Concomitant]
  3. GLUCOPHAGE [Concomitant]
  4. SINGULAIR [Concomitant]
  5. ZOCOR [Concomitant]
  6. SPIRIVA [Concomitant]
  7. SYMBICORT [Concomitant]
  8. PARADAXA [Concomitant]
  9. ASPIRIN [Concomitant]
  10. VITAMIN A [Concomitant]
  11. VITAMIN B THIAMINE [Concomitant]
  12. VITAMIN B RIBOFLAVIN [Concomitant]
  13. NIACIN [Concomitant]
  14. VITAMIN B-6 [Concomitant]
  15. VITAMIN B-12 [Concomitant]
  16. VITAMIN C [Concomitant]
  17. VITAMIN D [Concomitant]
  18. VITAMIN E [Concomitant]
  19. FOLIC ACID [Concomitant]
  20. CALCIUM [Concomitant]
  21. POTASSIUM [Concomitant]
  22. MAGNESIUM [Concomitant]
  23. ZINC [Concomitant]
  24. SELENIUM [Concomitant]
  25. COPPER [Concomitant]
  26. MANGANESE [Concomitant]
  27. CHROMOUM [Concomitant]
  28. MOLYBDENUM [Concomitant]
  29. CHLORIDE [Concomitant]
  30. IODINE [Concomitant]
  31. PHOSPHORS [Concomitant]
  32. CO-Q-10 [Concomitant]
  33. OMEGA 3 [Concomitant]
  34. MULTIVITAMIN [Concomitant]
  35. COZAAR [Concomitant]
  36. METOPROLOL [Concomitant]
  37. RIVAROXABAN [Concomitant]
  38. ZOCOR [Concomitant]
  39. ALDACTONE [Concomitant]
  40. TORSEMIDE [Concomitant]

REACTIONS (3)
  - Pneumonia [None]
  - Cardiac failure congestive [None]
  - Condition aggravated [None]
